FAERS Safety Report 20503740 (Version 1)
Quarter: 2022Q1

REPORT INFORMATION
  Report Type: Spontaneous
  Country: US (occurrence: None)
  Receive Date: 20220221
  Receipt Date: 20220221
  Transmission Date: 20220423
  Serious: Yes (Disabling, Other)
  Sender: FDA-Public Use
  Company Number: None

PATIENT
  Age: 52 Year
  Sex: Female

DRUGS (1)
  1. CYMBALTA [Suspect]
     Active Substance: DULOXETINE HYDROCHLORIDE
     Indication: Fibromyalgia
     Dosage: FREQUENCY : DAILY;?
     Route: 048
     Dates: start: 20191201, end: 20220110

REACTIONS (4)
  - Photopsia [None]
  - Retinal detachment [None]
  - Drug withdrawal syndrome [None]
  - Therapy cessation [None]

NARRATIVE: CASE EVENT DATE: 20220204
